FAERS Safety Report 8709573 (Version 2)
Quarter: 2012Q4

REPORT INFORMATION
  Report Type: 
  Country: US (occurrence: US)
  Receive Date: 20120806
  Receipt Date: 20121214
  Transmission Date: 20130627
  Serious: No
  Sender: FDA-Public Use
  Company Number: US-PFIZER INC-2012189465

PATIENT
  Age: 65 Year
  Sex: Female
  Weight: 79 kg

DRUGS (5)
  1. PROVERA [Suspect]
     Indication: HORMONE THERAPY
     Dosage: 10 mg a day for 12 days in a month
  2. MEDROXYPROGESTERONE ACETATE [Suspect]
     Indication: HORMONE THERAPY
     Dosage: UNK
  3. PRILOSEC [Concomitant]
     Indication: HEARTBURN
     Dosage: UNK
  4. CALCIUM LACTATE [Concomitant]
     Indication: DAIRY INTOLERANCE
     Dosage: UNK
  5. COUMADINE [Concomitant]
     Dosage: UNK

REACTIONS (3)
  - Drug ineffective [Unknown]
  - Menstrual disorder [Not Recovered/Not Resolved]
  - Abnormal withdrawal bleeding [Not Recovered/Not Resolved]
